FAERS Safety Report 15394512 (Version 1)
Quarter: 2018Q3

REPORT INFORMATION
  Report Type: Spontaneous
  Country: CA (occurrence: CA)
  Receive Date: 20180918
  Receipt Date: 20180918
  Transmission Date: 20181010
  Serious: Yes (Other)
  Sender: FDA-Public Use
  Company Number: CA-ROCHE-2184820

PATIENT
  Age: 72 Year
  Sex: Female

DRUGS (13)
  1. ARAVA [Interacting]
     Active Substance: LEFLUNOMIDE
     Indication: ARTHRITIS
     Route: 065
  2. ENBREL [Interacting]
     Active Substance: ETANERCEPT
     Indication: RHEUMATOID ARTHRITIS
     Route: 058
  3. CELEBREX [Interacting]
     Active Substance: CELECOXIB
     Indication: ARTHRITIS
     Route: 065
  4. METHOTREXATE. [Interacting]
     Active Substance: METHOTREXATE
     Indication: PRODUCT USED FOR UNKNOWN INDICATION
     Route: 058
  5. RITUXAN [Suspect]
     Active Substance: RITUXIMAB
     Indication: RHEUMATOID ARTHRITIS
     Route: 042
  6. HYDROXYCHLOROQUINE [Interacting]
     Active Substance: HYDROXYCHLOROQUINE
     Indication: RHEUMATOID ARTHRITIS
     Route: 065
  7. METHOTREXATE. [Interacting]
     Active Substance: METHOTREXATE
     Route: 058
  8. PREDNISONE. [Interacting]
     Active Substance: PREDNISONE
     Indication: RHEUMATOID ARTHRITIS
     Route: 065
  9. METHOTREXATE. [Interacting]
     Active Substance: METHOTREXATE
     Route: 058
  10. SULFASALAZINE. [Interacting]
     Active Substance: SULFASALAZINE
     Indication: PRODUCT USED FOR UNKNOWN INDICATION
     Route: 065
  11. LEFLUNOMIDE. [Interacting]
     Active Substance: LEFLUNOMIDE
     Indication: RHEUMATOID ARTHRITIS
     Route: 048
  12. METHOTREXATE. [Interacting]
     Active Substance: METHOTREXATE
     Route: 058
  13. ORENCIA [Interacting]
     Active Substance: ABATACEPT
     Indication: RHEUMATOID ARTHRITIS
     Route: 058

REACTIONS (16)
  - Bone swelling [Not Recovered/Not Resolved]
  - Pain [Not Recovered/Not Resolved]
  - Swelling [Not Recovered/Not Resolved]
  - Neoplasm malignant [Not Recovered/Not Resolved]
  - Oral candidiasis [Not Recovered/Not Resolved]
  - Condition aggravated [Not Recovered/Not Resolved]
  - Drug ineffective [Unknown]
  - Drug interaction [Unknown]
  - Nausea [Not Recovered/Not Resolved]
  - Candida infection [Not Recovered/Not Resolved]
  - Drug effect decreased [Not Recovered/Not Resolved]
  - Toxicity to various agents [Not Recovered/Not Resolved]
  - Joint swelling [Not Recovered/Not Resolved]
  - Rheumatoid arthritis [Not Recovered/Not Resolved]
  - Peripheral swelling [Not Recovered/Not Resolved]
  - Thyroid neoplasm [Not Recovered/Not Resolved]
